FAERS Safety Report 13236678 (Version 1)
Quarter: 2017Q1

REPORT INFORMATION
  Report Type: Spontaneous
  Country: RO (occurrence: RO)
  Receive Date: 20170215
  Receipt Date: 20170215
  Transmission Date: 20170428
  Serious: Yes (Death, Hospitalization)
  Sender: FDA-Public Use
  Company Number: RO-CELGENEUS-ROU-2015021385

PATIENT
  Age: 57 Year
  Sex: Male
  Weight: 75 kg

DRUGS (1)
  1. REVLIMID [Suspect]
     Active Substance: LENALIDOMIDE
     Indication: PLASMA CELL MYELOMA
     Dosage: 25 MILLIGRAM
     Route: 048
     Dates: start: 20131126, end: 20150204

REACTIONS (3)
  - Influenza A virus test positive [Unknown]
  - Pneumonia influenzal [Recovered/Resolved with Sequelae]
  - Acute respiratory distress syndrome [Fatal]

NARRATIVE: CASE EVENT DATE: 201502
